FAERS Safety Report 9877907 (Version 1)
Quarter: 2014Q1

REPORT INFORMATION
  Report Type: Spontaneous
  Country: CH (occurrence: CH)
  Receive Date: 20140206
  Receipt Date: 20140206
  Transmission Date: 20141002
  Serious: Yes (Hospitalization)
  Sender: FDA-Public Use
  Company Number: PHHY2014CH012177

PATIENT
  Age: 72 Year
  Sex: Male

DRUGS (11)
  1. RASILEZ [Suspect]
     Dosage: 300 MG, DAILY
     Route: 048
     Dates: end: 20140107
  2. TARGIN [Suspect]
     Dosage: 2.5 MG, DAILY
     Route: 048
     Dates: end: 20140107
  3. NOROXIN [Suspect]
     Dosage: 400 MG, BID
     Route: 048
     Dates: start: 20140104, end: 20140107
  4. ATACAND [Concomitant]
     Dosage: 16 MG, DAILY
  5. TORASEM [Concomitant]
     Dosage: UNK UKN, UNK
  6. ASPIRIN CARDIO [Concomitant]
     Dosage: UNK UKN, UNK
  7. NEBILET [Concomitant]
     Dosage: UNK UKN, UNK
  8. PANTOZOL [Concomitant]
     Dosage: UNK UKN, UNK
  9. CITALOPRAM [Concomitant]
     Dosage: UNK UKN, UNK
  10. COMPETACT [Concomitant]
     Dosage: UNK UKN, UNK
     Dates: end: 20140107
  11. LAXOBERON [Concomitant]
     Dosage: UNK UKN, UNK

REACTIONS (3)
  - Hallucination, visual [Recovered/Resolved]
  - Confusional state [Recovered/Resolved]
  - Renal failure chronic [Not Recovered/Not Resolved]
